FAERS Safety Report 6551521-7 (Version None)
Quarter: 2010Q1

REPORT INFORMATION
  Report Type: 
  Country: None (occurrence: None)
  Receive Date: 20100120
  Receipt Date: 20100107
  Transmission Date: 20100710
  Serious: Yes (Hospitalization)
  Sender: FDA-Public Use
  Company Number: 8053795

PATIENT
  Sex: Female

DRUGS (12)
  1. CERTOLIZUMAB PEGOL (CERTOLIZUMAB PEGOL) [Suspect]
     Indication: ARTHRITIS
     Dosage: (SUBCUTANEOUS), (200 MG 1X/2 WEEKS SUBCUTANEOUS)
     Route: 058
     Dates: start: 20090826, end: 20091021
  2. CERTOLIZUMAB PEGOL (CERTOLIZUMAB PEGOL) [Suspect]
     Indication: RHEUMATOID ARTHRITIS
     Dosage: (SUBCUTANEOUS), (200 MG 1X/2 WEEKS SUBCUTANEOUS)
     Route: 058
     Dates: start: 20090826, end: 20091021
  3. CERTOLIZUMAB PEGOL (CERTOLIZUMAB PEGOL) [Suspect]
     Indication: ARTHRITIS
     Dosage: (SUBCUTANEOUS), (200 MG 1X/2 WEEKS SUBCUTANEOUS)
     Route: 058
     Dates: start: 20090511
  4. CERTOLIZUMAB PEGOL (CERTOLIZUMAB PEGOL) [Suspect]
     Indication: RHEUMATOID ARTHRITIS
     Dosage: (SUBCUTANEOUS), (200 MG 1X/2 WEEKS SUBCUTANEOUS)
     Route: 058
     Dates: start: 20090511
  5. METHOTREXATE [Concomitant]
  6. FOLIC ACID [Concomitant]
  7. MELOXICAM [Concomitant]
  8. PREDNISOLONE [Concomitant]
  9. LOXOPROFEN SODIUM [Concomitant]
  10. INDOMETACIN [Concomitant]
  11. CLARITHROMYCIN [Concomitant]
  12. TEPRENONE [Concomitant]

REACTIONS (3)
  - ANIMAL BITE [None]
  - INFECTIVE TENOSYNOVITIS [None]
  - STAPHYLOCOCCAL INFECTION [None]
